FAERS Safety Report 7775131-9 (Version None)
Quarter: 2011Q3

REPORT INFORMATION
  Report Type: 
  Country: None (occurrence: None)
  Receive Date: 20110923
  Receipt Date: 20110914
  Transmission Date: 20111222
  Serious: Yes (Hospitalization)
  Sender: FDA-Public Use
  Company Number: US-JNJFOC-20100706893

PATIENT
  Sex: Male
  Weight: 12.5 kg

DRUGS (19)
  1. BACTRIM [Concomitant]
  2. DEXTRAN INJ [Concomitant]
  3. FERROUS SULFATE TAB [Concomitant]
  4. ACETAMINOPHEN [Concomitant]
  5. PROBIOTICS [Concomitant]
  6. KEFLEX [Concomitant]
  7. REMICADE [Suspect]
     Route: 042
     Dates: start: 20091111
  8. HYDROCODONE [Concomitant]
  9. REMICADE [Suspect]
     Route: 042
     Dates: start: 20110301
  10. MESALAMINE [Concomitant]
     Route: 054
  11. PREDNISONE [Concomitant]
  12. PREVACID [Concomitant]
  13. REMICADE [Suspect]
     Indication: CROHN'S DISEASE
     Route: 042
  14. REMICADE [Suspect]
     Route: 042
     Dates: start: 20101122, end: 20101122
  15. ANTIBIOTICS [Concomitant]
     Indication: INFLAMMATORY BOWEL DISEASE
  16. REMICADE [Suspect]
     Route: 042
     Dates: start: 20100618
  17. REMICADE [Suspect]
     Route: 042
     Dates: start: 20101014
  18. MULTI-VITAMINS [Concomitant]
  19. MORPHINE [Concomitant]

REACTIONS (1)
  - CROHN'S DISEASE [None]
